FAERS Safety Report 6840832-3 (Version None)
Quarter: 2010Q3

REPORT INFORMATION
  Report Type: 
  Country: None (occurrence: None)
  Receive Date: 20100714
  Receipt Date: 20100708
  Transmission Date: 20110219
  Serious: Yes (Hospitalization)
  Sender: FDA-Public Use
  Company Number: BE-ABBOTT-10P-013-0640920-00

PATIENT
  Sex: Female

DRUGS (6)
  1. KALETRA [Suspect]
     Indication: HIV INFECTION
     Dosage: DAILY DOSE: 800/200MG
     Dates: start: 20071224
  2. KALETRA [Suspect]
     Indication: ANTIRETROVIRAL THERAPY
  3. EMTRIVA [Concomitant]
     Indication: HIV INFECTION
     Dosage: DAILY DOSE: 400MG
     Dates: start: 20071224
  4. EMTRIVA [Concomitant]
     Indication: ANTIRETROVIRAL THERAPY
  5. VIREAD [Concomitant]
     Indication: HIV INFECTION
     Dates: start: 20071224
  6. VIREAD [Concomitant]
     Indication: ANTIRETROVIRAL THERAPY

REACTIONS (1)
  - MENOMETRORRHAGIA [None]
